FAERS Safety Report 4776451-2 (Version None)
Quarter: 2005Q3

REPORT INFORMATION
  Report Type: 
  Country: None (occurrence: None)
  Receive Date: 20050922
  Receipt Date: 20050914
  Transmission Date: 20060218
  Serious: Yes (Hospitalization)
  Sender: FDA-Public Use
  Company Number: GB-MERCK-0509GBR00083

PATIENT
  Age: 79 Year
  Sex: Male
  Weight: 75 kg

DRUGS (8)
  1. ZOCOR [Suspect]
     Indication: BLOOD CHOLESTEROL INCREASED
     Route: 048
     Dates: start: 20050210, end: 20050213
  2. DALTEPARIN SODIUM [Concomitant]
     Indication: THROMBOSIS PROPHYLAXIS
     Route: 058
     Dates: start: 20050205
  3. ACETAMINOPHEN [Concomitant]
     Indication: PAIN
     Route: 048
     Dates: start: 20050205
  4. OMEPRAZOLE [Concomitant]
     Indication: GASTROOESOPHAGEAL REFLUX DISEASE
     Route: 065
  5. MEROPENEM [Concomitant]
     Indication: SEPSIS
     Route: 042
     Dates: start: 20050207
  6. TEICOPLANIN [Concomitant]
     Indication: SEPSIS
     Route: 042
     Dates: start: 20050207
  7. CIPROFLOXACIN [Concomitant]
     Indication: SEPSIS
     Route: 065
     Dates: start: 20050208
  8. INSULIN, NEUTRAL [Concomitant]
     Indication: BLOOD GLUCOSE ABNORMAL
     Route: 042
     Dates: start: 20050205

REACTIONS (2)
  - BLOOD AMYLASE INCREASED [None]
  - PANCREATITIS [None]
